FAERS Safety Report 24857475 (Version 1)
Quarter: 2025Q1

REPORT INFORMATION
  Report Type: Report from Study
  Country: US (occurrence: US)
  Receive Date: 20250117
  Receipt Date: 20250117
  Transmission Date: 20250408
  Serious: Yes (Death, Other)
  Sender: ABBVIE
  Company Number: US-ABBVIE-6087310

PATIENT
  Age: 89 Year
  Sex: Male

DRUGS (1)
  1. SKYRIZI [Suspect]
     Active Substance: RISANKIZUMAB-RZAA
     Indication: Psoriasis
     Route: 058
     Dates: start: 20240726, end: 20250111

REACTIONS (2)
  - Myocardial infarction [Fatal]
  - Infection [Unknown]

NARRATIVE: CASE EVENT DATE: 20250101
